FAERS Safety Report 17338120 (Version 1)
Quarter: 2020Q1

REPORT INFORMATION
  Report Type: Spontaneous
  Country: US (occurrence: US)
  Receive Date: 20200113
  Receipt Date: 20200113
  Transmission Date: 20200409
  Serious: No
  Sender: FDA-Public Use
  Company Number: None

PATIENT
  Sex: Female

DRUGS (1)
  1. BENLYSTA [Suspect]
     Active Substance: BELIMUMAB
     Indication: SYSTEMIC LUPUS ERYTHEMATOSUS
     Dosage: ?          OTHER ROUTE:UNDER THE SKIN?
     Dates: start: 20180605

REACTIONS (4)
  - Bone pain [None]
  - Fatigue [None]
  - Condition aggravated [None]
  - Rash [None]
